FAERS Safety Report 15374567 (Version 2)
Quarter: 2018Q4

REPORT INFORMATION
  Report Type: Spontaneous
  Country: JP (occurrence: JP)
  Receive Date: 20180912
  Receipt Date: 20181108
  Transmission Date: 20190204
  Serious: Yes (Hospitalization)
  Sender: FDA-Public Use
  Company Number: JP-AMGEN-JPNSP2018126337

PATIENT
  Age: 77 Year
  Sex: Female
  Weight: 78 kg

DRUGS (8)
  1. LANSOPRAZOLE. [Concomitant]
     Active Substance: LANSOPRAZOLE
     Dosage: 15 MG, QD
     Route: 048
     Dates: start: 2010
  2. TOCOPHEROL [Concomitant]
     Active Substance: TOCOPHEROL
     Dosage: 100 MG, TID
     Route: 048
     Dates: start: 2010
  3. IRSOGLADINE MALEATE [Concomitant]
     Active Substance: IRSOGLADINE MALEATE
     Dosage: 2 MG, BID
     Route: 048
     Dates: start: 2010
  4. PREDONINE [Concomitant]
     Active Substance: PREDNISOLONE
     Dosage: 5 MG, QD
     Route: 048
     Dates: start: 2010
  5. PRALIA [Suspect]
     Active Substance: DENOSUMAB
     Indication: OSTEOPOROSIS
     Dosage: 60 MG, Q6MO
     Route: 058
     Dates: start: 20180903, end: 20180903
  6. AZULFIDINE EN-TABS [Concomitant]
     Active Substance: SULFASALAZINE
     Dosage: 500 MG, QD
     Route: 048
     Dates: start: 2010
  7. LOXOPROFEN NA [Concomitant]
     Active Substance: LOXOPROFEN SODIUM
     Dosage: 60 MG, BID
     Route: 048
     Dates: start: 2010
  8. BERAPROST NA [Concomitant]
     Active Substance: BERAPROST SODIUM
     Dosage: 20 MUG, TID
     Route: 048
     Dates: start: 2010

REACTIONS (1)
  - Syncope [Recovered/Resolved]

NARRATIVE: CASE EVENT DATE: 20180903
